FAERS Safety Report 24979694 (Version 3)
Quarter: 2025Q2

REPORT INFORMATION
  Report Type: Report from Study
  Country: US (occurrence: US)
  Receive Date: 20250218
  Receipt Date: 20250515
  Transmission Date: 20250716
  Serious: Yes (Hospitalization)
  Sender: ABBVIE
  Company Number: US-ABBVIE-6133230

PATIENT
  Age: 73 Year
  Sex: Female
  Weight: 69.853 kg

DRUGS (2)
  1. SKYRIZI [Suspect]
     Active Substance: RISANKIZUMAB-RZAA
     Indication: Psoriatic arthropathy
     Route: 058
     Dates: start: 20230130
  2. NADOLOL [Concomitant]
     Active Substance: NADOLOL
     Indication: Product used for unknown indication

REACTIONS (6)
  - Pancreatitis [Recovered/Resolved]
  - Fatigue [Recovering/Resolving]
  - Mobility decreased [Recovered/Resolved]
  - Escherichia infection [Recovering/Resolving]
  - Dysstasia [Unknown]
  - Weight decreased [Recovering/Resolving]

NARRATIVE: CASE EVENT DATE: 20250101
